FAERS Safety Report 5290401-4 (Version None)
Quarter: 2007Q2

REPORT INFORMATION
  Report Type: 
  Country: None (occurrence: None)
  Receive Date: 20070409
  Receipt Date: 20070404
  Transmission Date: 20071010
  Serious: Yes (Hospitalization, Other)
  Sender: FDA-Public Use
  Company Number: US-BAYER-200614583BCC

PATIENT
  Age: 55 Year
  Sex: Male
  Weight: 84 kg

DRUGS (8)
  1. ALKA SELTZER PLUS EFFERVESCENT COLD [Suspect]
     Indication: HYPERSENSITIVITY
     Route: 048
     Dates: start: 19970101
  2. ALKA SELTZER PLUS EFFERVESCENT COLD [Suspect]
     Route: 048
     Dates: start: 20030101, end: 20060201
  3. ASPIRIN [Suspect]
     Dosage: TOTAL DAILY DOSE: 325 MG  UNIT DOSE: 325 MG
     Route: 048
     Dates: start: 20060201
  4. LIPITOR [Concomitant]
     Route: 048
     Dates: start: 20060201
  5. PLAVIX [Concomitant]
     Dosage: TOTAL DAILY DOSE: 75 MG
     Route: 048
     Dates: start: 20060201
  6. LOPRESSOR [Concomitant]
     Dosage: TOTAL DAILY DOSE: 50 MG
     Route: 048
     Dates: start: 20060201
  7. PROTONIX [Concomitant]
  8. TUMS [Concomitant]

REACTIONS (6)
  - CEREBROVASCULAR ACCIDENT [None]
  - CHEST PAIN [None]
  - DYSARTHRIA [None]
  - GAIT DISTURBANCE [None]
  - HEADACHE [None]
  - MYOCARDIAL INFARCTION [None]
